FAERS Safety Report 9268061 (Version 1)
Quarter: 2013Q2

REPORT INFORMATION
  Report Type: Report from Study
  Country: US (occurrence: US)
  Receive Date: 20130502
  Receipt Date: 20130502
  Transmission Date: 20140414
  Serious: No
  Sender: FDA-Public Use
  Company Number: US-ALEXION PHARMACEUTICALS INC.-A201201756

PATIENT
  Sex: Female
  Weight: 54 kg

DRUGS (10)
  1. SOLIRIS [Suspect]
     Indication: HAEMOLYTIC URAEMIC SYNDROME
     Dosage: 1200 MG, Q2W
     Route: 042
     Dates: start: 201112
  2. ANTIHYPERTENSIVES [Concomitant]
     Indication: HYPERTENSION
     Dosage: UNK
  3. IMDUR [Concomitant]
     Dosage: 30 MG, QD
     Route: 048
  4. DIFLUCAN [Concomitant]
     Dosage: 200 MG, QD
     Route: 048
  5. ISOSORBIDE DINITRATE [Concomitant]
     Dosage: 30 MG, QD
     Route: 048
  6. CARVEDILOL [Concomitant]
     Dosage: 25 MG, BID
     Route: 048
  7. LIPITOR [Concomitant]
     Dosage: 20 MG, QD
     Route: 048
  8. COLACE [Concomitant]
     Dosage: 100 MG, BID
     Route: 048
  9. AMLODIPINE BESYLATE [Concomitant]
     Dosage: 10 MG, QD
     Route: 048
  10. VITAMIN B COMPLEX [Concomitant]
     Dosage: 1000 ?G, SINGLE - LEFT ARM
     Route: 030

REACTIONS (6)
  - Muscle fatigue [Not Recovered/Not Resolved]
  - Somnolence [Not Recovered/Not Resolved]
  - Headache [Not Recovered/Not Resolved]
  - Fatigue [Not Recovered/Not Resolved]
  - Hypotension [Recovered/Resolved]
  - Muscle spasms [Not Recovered/Not Resolved]
